FAERS Safety Report 6862159-6 (Version None)
Quarter: 2010Q3

REPORT INFORMATION
  Report Type: 
  Country: None (occurrence: None)
  Receive Date: 20100719
  Receipt Date: 20100706
  Transmission Date: 20110219
  Serious: Yes (Hospitalization)
  Sender: FDA-Public Use
  Company Number: 7008914

PATIENT
  Age: 41 Year
  Sex: Female

DRUGS (4)
  1. REBIF [Suspect]
     Indication: MULTIPLE SCLEROSIS
     Dosage: 44 MCG, 3 IN 1 WK, SUBCUTANEOUS
     Route: 058
     Dates: start: 20081209
  2. INSULIN [Concomitant]
  3. LISINOPRIL [Concomitant]
  4. PROVIGIL [Concomitant]

REACTIONS (6)
  - DEHYDRATION [None]
  - DIABETIC NEUROPATHY [None]
  - ECONOMIC PROBLEM [None]
  - MULTIPLE SCLEROSIS [None]
  - MUSCLE SPASMS [None]
  - TINNITUS [None]
